FAERS Safety Report 9393278 (Version 2)
Quarter: 2013Q3

REPORT INFORMATION
  Report Type: Report from Study
  Country: BE (occurrence: BE)
  Receive Date: 20130710
  Receipt Date: 20130711
  Transmission Date: 20140515
  Serious: Yes (Death, Hospitalization)
  Sender: FDA-Public Use
  Company Number: BE-ROCHE-1088104

PATIENT
  Age: 65 Year
  Sex: Male
  Weight: 67.4 kg

DRUGS (11)
  1. BEVACIZUMAB [Suspect]
     Indication: COLORECTAL CANCER METASTATIC
     Dosage: MOST RECENT DOSE PRIOR TO SAE: 25/JUL/2012
     Route: 042
     Dates: start: 20120627
  2. OXALIPLATIN [Suspect]
     Indication: COLORECTAL CANCER METASTATIC
     Dosage: MOST RECENT DOSE PRIOR TO SAE: 25/JUL/2012
     Route: 042
     Dates: start: 20120627
  3. LEUCOVORIN CALCIUM [Suspect]
     Indication: COLORECTAL CANCER METASTATIC
     Dosage: MOST RECENT DOSE PRIOR TO SAE:  25/JUL/2012
     Route: 042
     Dates: start: 20120627
  4. FLUOROURACIL [Suspect]
     Indication: COLORECTAL CANCER METASTATIC
     Dosage: MOST RECENT DOSE (BOLUS) PRIOR TO SAE:  25/JUL/2012
     Route: 040
     Dates: start: 20120627
  5. FLUOROURACIL [Suspect]
     Dosage: MOST RECENT DOSE (INFUSION) PRIOR TO SAE: ON 25/JUL/2012
     Route: 042
     Dates: start: 20120627
  6. ZINACEF [Concomitant]
     Indication: INFLAMMATION
     Route: 042
     Dates: start: 20120730
  7. FLAGYL [Concomitant]
     Indication: INFECTION PARASITIC
     Route: 042
     Dates: start: 20120730
  8. DEXAMETHASONE [Concomitant]
     Indication: INFLAMMATION
     Route: 042
     Dates: start: 20120627, end: 20120725
  9. ONDANSETRON [Concomitant]
     Indication: NAUSEA
     Route: 042
     Dates: start: 20120627, end: 20120725
  10. DAFALGAN [Concomitant]
     Indication: PYREXIA
     Route: 048
     Dates: start: 20120712, end: 20120712
  11. PLACEBO [Suspect]
     Indication: COLORECTAL CANCER METASTATIC
     Dosage: MOST RECENT DOSE PRIOR TO SAE: 25/JUL/2012
     Route: 042
     Dates: start: 20120627

REACTIONS (3)
  - Large intestine perforation [Fatal]
  - Large intestinal obstruction [Recovered/Resolved]
  - Large intestine perforation [Recovered/Resolved]
